FAERS Safety Report 25522378 (Version 1)
Quarter: 2025Q3

REPORT INFORMATION
  Report Type: Spontaneous
  Country: EU (occurrence: EU)
  Receive Date: 20250707
  Receipt Date: 20250707
  Transmission Date: 20251021
  Serious: Yes (Life-Threatening, Hospitalization, Other)
  Sender: CELLTRION
  Company Number: EU-TEVA-VS-3299104

PATIENT

DRUGS (2)
  1. ADALIMUMAB [Suspect]
     Active Substance: ADALIMUMAB
     Indication: Rheumatoid arthritis
     Route: 065
  2. METHOTREXATE [Suspect]
     Active Substance: METHOTREXATE
     Indication: Product used for unknown indication
     Route: 065

REACTIONS (8)
  - Neutropenia [Recovered/Resolved]
  - Spleen disorder [Recovered/Resolved]
  - Lymphadenopathy mediastinal [Recovered/Resolved]
  - Hypermetabolism [Recovered/Resolved]
  - Hilar lymphadenopathy [Recovered/Resolved]
  - Granuloma [Recovered/Resolved]
  - Sarcoidosis [Recovered/Resolved]
  - Drug intolerance [Unknown]
